FAERS Safety Report 8913316 (Version 1)
Quarter: 2012Q4

REPORT INFORMATION
  Report Type: 
  Country: US (occurrence: US)
  Receive Date: 20121116
  Receipt Date: 20121116
  Transmission Date: 20130627
  Serious: Yes (Other)
  Sender: FDA-Public Use
  Company Number: US-PFIZER INC-2012285330

PATIENT
  Age: 57 Year
  Sex: Female
  Weight: 71.66 kg

DRUGS (8)
  1. LIPITOR [Suspect]
     Indication: HIGH CHOLESTEROL
     Dosage: UNK
     Route: 065
     Dates: end: 201207
  2. HUMIRA [Suspect]
     Indication: PSORIATIC ARTHRITIS
     Dosage: 40 mg, 1 in 2 weeks
     Route: 065
     Dates: start: 2009
  3. HUMIRA [Suspect]
     Indication: PSORIASIS
  4. MOBIC [Concomitant]
     Indication: PSORIATIC ARTHRITIS
     Dosage: UNK
  5. AZULFIDINE [Concomitant]
     Indication: PSORIATIC ARTHRITIS
     Dosage: UNK
  6. AZULFIDINE [Concomitant]
     Indication: PSORIASIS
  7. HYDROCHLOROTHIAZIDE [Concomitant]
     Indication: HYPERTENSION
     Dosage: UNK
  8. SIMVASTATIN [Concomitant]
     Indication: HIGH CHOLESTEROL
     Dosage: UNK
     Dates: start: 20121004

REACTIONS (8)
  - Psoriatic arthropathy [Not Recovered/Not Resolved]
  - Psoriasis [Not Recovered/Not Resolved]
  - Insomnia [Unknown]
  - Pain [Not Recovered/Not Resolved]
  - Muscle spasms [Recovered/Resolved]
  - Muscle spasms [Recovered/Resolved]
  - Muscle spasms [Recovered/Resolved]
  - Abdominal pain upper [Recovered/Resolved]
